FAERS Safety Report 8415572-X (Version None)
Quarter: 2012Q2

REPORT INFORMATION
  Report Type: 
  Country: None (occurrence: None)
  Receive Date: 20120323
  Receipt Date: 20111222
  Transmission Date: 20120825
  Serious: Yes (Hospitalization)
  Sender: FDA-Public Use
  Company Number: 163-21880-11123238

PATIENT
  Age: 52 Year
  Sex: Male
  Weight: 116.1208 kg

DRUGS (10)
  1. RIFAMPIN [Concomitant]
  2. TEA TREE (MELALEUCA ALTERNIFOLIA OIL) [Concomitant]
  3. ASCORBIC ACID [Concomitant]
  4. FISH OIL (FISH OIL) [Concomitant]
  5. NITE TIME (NITE-TIME COLD MEDICINE) [Concomitant]
  6. MULTIVITAMIN [Concomitant]
  7. ALOE VERA (ALOES EXTRACT) [Concomitant]
  8. REVLIMID [Suspect]
     Indication: MULTIPLE MYELOMA
     Dosage: 25 MG, DAILY X21 DAYS, PO
     Route: 048
     Dates: start: 20110801
  9. CALCIUM + D (OS-CAL) [Concomitant]
  10. JOINT SUPPORT (ALL OTHER THERAPEUTIC PRODUCTS) [Concomitant]

REACTIONS (2)
  - BACK PAIN [None]
  - INFECTION [None]
